FAERS Safety Report 14367446 (Version 1)
Quarter: 2018Q1

REPORT INFORMATION
  Report Type: Spontaneous
  Country: US (occurrence: US)
  Receive Date: 20180109
  Receipt Date: 20180109
  Transmission Date: 20180509
  Serious: No
  Sender: FDA-Public Use
  Company Number: US-SHIRE-US201736409

PATIENT
  Age: 60 Year
  Weight: 56.69 kg

DRUGS (2)
  1. EFFEXOR [Concomitant]
     Active Substance: VENLAFAXINE HYDROCHLORIDE
     Indication: PRODUCT USED FOR UNKNOWN INDICATION
  2. VYVANSE [Suspect]
     Active Substance: LISDEXAMFETAMINE DIMESYLATE
     Indication: SOMNOLENCE
     Dosage: 30 MG, 1X/DAY:QD
     Route: 048
     Dates: start: 201708

REACTIONS (3)
  - Dry mouth [Unknown]
  - Nasopharyngitis [Unknown]
  - Skin discolouration [Unknown]
